FAERS Safety Report 12416106 (Version 3)
Quarter: 2016Q3

REPORT INFORMATION
  Report Type: Spontaneous
  Country: US (occurrence: US)
  Receive Date: 20160530
  Receipt Date: 20160705
  Transmission Date: 20161109
  Serious: No
  Sender: FDA-Public Use
  Company Number: US-PFIZER INC-2016251938

PATIENT
  Age: 50 Year
  Sex: Female
  Weight: 61 kg

DRUGS (3)
  1. MEDROXYPROGESTERONE ACETATE. [Suspect]
     Active Substance: MEDROXYPROGESTERONE ACETATE
     Indication: UTERINE LEIOMYOMA
     Dosage: UNK
     Route: 030
     Dates: start: 2015
  2. MEDROXYPROGESTERONE ACETATE. [Suspect]
     Active Substance: MEDROXYPROGESTERONE ACETATE
     Indication: UTERINE FIBROSIS
     Dosage: UNK
     Route: 030
     Dates: start: 2015
  3. MEDROXYPROGESTERONE ACETATE. [Suspect]
     Active Substance: MEDROXYPROGESTERONE ACETATE
     Indication: MENSTRUAL CYCLE MANAGEMENT
     Dosage: 150 MG, EVERY 10 WEEKS
     Route: 058
     Dates: start: 201507

REACTIONS (5)
  - Incorrect route of drug administration [Unknown]
  - Menometrorrhagia [Recovered/Resolved]
  - Injection site mass [Recovered/Resolved]
  - Product use issue [Not Recovered/Not Resolved]
  - Muscle spasms [Recovered/Resolved]

NARRATIVE: CASE EVENT DATE: 201507
